FAERS Safety Report 6140341-3 (Version None)
Quarter: 2009Q2

REPORT INFORMATION
  Report Type: 
  Country: None (occurrence: None)
  Receive Date: 20090401
  Receipt Date: 20090326
  Transmission Date: 20091009
  Serious: Yes (Other)
  Sender: FDA-Public Use
  Company Number: GB-ABBOTT-09P-167-0561035-00

PATIENT
  Age: 36 Year
  Sex: Male

DRUGS (22)
  1. VALPROATE SODIUM [Suspect]
     Indication: EPILEPSY
     Route: 048
     Dates: start: 19770101, end: 19820101
  2. VALPROATE SODIUM [Suspect]
     Route: 048
     Dates: start: 19820101, end: 19870101
  3. VALPROATE SODIUM [Suspect]
     Route: 048
     Dates: start: 19880101, end: 19970101
  4. VALPROATE SODIUM [Suspect]
     Dates: start: 20030101, end: 20040101
  5. EPILIM CHRONO TABLETS [Suspect]
     Indication: DRUG USE FOR UNKNOWN INDICATION
     Route: 048
     Dates: start: 19970101, end: 20030101
  6. EPILIM CHRONO TABLETS [Suspect]
     Route: 048
     Dates: start: 20040101
  7. EPILIM CHRONO TABLETS [Suspect]
  8. EPILIM SYRUP [Suspect]
     Indication: GASTROOESOPHAGEAL REFLUX DISEASE
     Dosage: TWO SPOONFULS THREE TIMES A DAY
     Route: 048
     Dates: start: 20030101, end: 20040101
  9. PAROXETINE HCL [Interacting]
     Indication: DRUG USE FOR UNKNOWN INDICATION
  10. PARACETAMOL [Concomitant]
     Indication: INTERVERTEBRAL DISC PROTRUSION
  11. FYBOGEL [Concomitant]
     Indication: CONSTIPATION
  12. BALNEUM PLUS [Concomitant]
     Indication: URTICARIA
  13. BALNEUM PLUS [Concomitant]
     Indication: RASH PRURITIC
  14. IBUGEL [Concomitant]
     Indication: POSTOPERATIVE ANALGESIA
     Route: 062
  15. IBUGEL [Concomitant]
     Indication: INTERVERTEBRAL DISC OPERATION
  16. OILATUM CREAM [Concomitant]
     Indication: SKIN DISORDER
  17. POLYTAR [Concomitant]
     Indication: URTICARIA
  18. POLYTAR [Concomitant]
     Indication: RASH PRURITIC
  19. DESMOTABS [Concomitant]
     Indication: ENURESIS
  20. DESMOTABS [Concomitant]
     Indication: RENAL DISORDER
  21. LANSOPRAZOLE [Concomitant]
     Indication: GASTROOESOPHAGEAL REFLUX DISEASE
     Route: 048
  22. GAVISON [Concomitant]
     Indication: GASTROOESOPHAGEAL REFLUX DISEASE
     Route: 048

REACTIONS (12)
  - AMNESIA [None]
  - CONVULSION [None]
  - DISTURBANCE IN ATTENTION [None]
  - DRUG INTERACTION [None]
  - GYNAECOMASTIA [None]
  - HYPERTRICHOSIS [None]
  - MALAISE [None]
  - MOOD ALTERED [None]
  - SOMNOLENCE [None]
  - TREMOR [None]
  - URINARY INCONTINENCE [None]
  - URTICARIA [None]
